FAERS Safety Report 17511779 (Version 2)
Quarter: 2020Q1

REPORT INFORMATION
  Report Type: Spontaneous
  Country: US (occurrence: US)
  Receive Date: 20200306
  Receipt Date: 20200312
  Transmission Date: 20200409
  Serious: No
  Sender: FDA-Public Use
  Company Number: US-AMGEN-USASP2020035702

PATIENT
  Age: 77 Year
  Sex: Male
  Weight: 109.75 kg

DRUGS (1)
  1. NPLATE [Suspect]
     Active Substance: ROMIPLOSTIM
     Indication: IMMUNE THROMBOCYTOPENIC PURPURA
     Dosage: 250 MICROGRAM
     Route: 065
     Dates: start: 20181218

REACTIONS (2)
  - Intercepted product preparation error [Unknown]
  - Product dose omission [Unknown]
